FAERS Safety Report 7233672-7 (Version None)
Quarter: 2011Q1

REPORT INFORMATION
  Report Type: 
  Country: None (occurrence: None)
  Receive Date: 20110119
  Receipt Date: 20091217
  Transmission Date: 20110831
  Serious: No
  Sender: FDA-Public Use
  Company Number: US-TEVA-218680USA

PATIENT
  Sex: Female

DRUGS (7)
  1. COPAXONE [Suspect]
     Indication: MULTIPLE SCLEROSIS
     Dosage: QD
     Route: 058
     Dates: start: 20090711
  2. CYCLOBENZAPRINE [Concomitant]
     Indication: MULTIPLE SCLEROSIS
  3. MULTI-VITAMIN [Concomitant]
  4. PIROXICAM [Concomitant]
  5. OMEPRAZOLE [Concomitant]
  6. LEVOTHYROXINE [Concomitant]
  7. DICLOFENAC SODIUM [Concomitant]

REACTIONS (5)
  - DYSGEUSIA [None]
  - DIZZINESS [None]
  - TREMOR [None]
  - SYNCOPE [None]
  - HYPERHIDROSIS [None]
